FAERS Safety Report 5350242-6 (Version None)
Quarter: 2007Q2

REPORT INFORMATION
  Report Type: 
  Country: None (occurrence: None)
  Receive Date: 20070516
  Receipt Date: 20070316
  Transmission Date: 20071010
  Serious: Yes (Other)
  Sender: FDA-Public Use
  Company Number: 2007022564

PATIENT
  Age: 23 Year
  Sex: Female
  Weight: 51.3 kg

DRUGS (2)
  1. DEPO-PROVERA [Suspect]
     Indication: CONTRACEPTION
     Dosage: 150 MG (150 MG, FIRST INJECTION), INTRAMUSCULAR 150 MG (150 MG, LAST INJECTION), INTRAMUSCULAR
     Route: 030
     Dates: start: 20041101, end: 20041101
  2. DEPO-PROVERA [Suspect]
     Indication: CONTRACEPTION
     Dosage: 150 MG (150 MG, FIRST INJECTION), INTRAMUSCULAR 150 MG (150 MG, LAST INJECTION), INTRAMUSCULAR
     Route: 030
     Dates: start: 20061220, end: 20061220

REACTIONS (2)
  - DRUG INEFFECTIVE [None]
  - UNINTENDED PREGNANCY [None]
